FAERS Safety Report 4328001-2 (Version None)
Quarter: 2004Q1

REPORT INFORMATION
  Report Type: 
  Country: None (occurrence: None)
  Receive Date: 20040325
  Receipt Date: 20040316
  Transmission Date: 20041129
  Serious: Yes (Death)
  Sender: FDA-Public Use
  Company Number: 163-20785-03120382

PATIENT
  Age: 70 Year
  Sex: Male

DRUGS (1)
  1. THALOMID [Suspect]
     Indication: MULTIPLE MYELOMA
     Dosage: 200 MG , DAILY, ORAL
     Route: 048
     Dates: start: 20030925, end: 20031027

REACTIONS (1)
  - NON-SMALL CELL LUNG CANCER [None]
